FAERS Safety Report 7232338-7 (Version None)
Quarter: 2011Q1

REPORT INFORMATION
  Report Type: 
  Country: None (occurrence: None)
  Receive Date: 20110119
  Receipt Date: 20110106
  Transmission Date: 20110831
  Serious: Yes (Death, Hospitalization)
  Sender: FDA-Public Use
  Company Number: US-RANBAXY-2011US-40963

PATIENT

DRUGS (11)
  1. COLCHINE [Suspect]
     Indication: RHEUMATOID ARTHRITIS
     Dosage: UNK, UNK
     Route: 048
     Dates: start: 20100201
  2. COLCHINE [Suspect]
     Indication: BLOOD URIC ACID INCREASED
     Dosage: UNK
     Route: 048
     Dates: start: 20100423, end: 20100504
  3. NORIXINE [Suspect]
     Indication: PRODUCT USED FOR UNKNOWN INDICATION
     Dosage: UNK, UNK
     Route: 065
  4. ISOPTIN [Suspect]
     Indication: PRODUCT USED FOR UNKNOWN INDICATION
     Dosage: 240 MG
     Route: 065
  5. PARACETAMOL [Suspect]
     Indication: PRODUCT USED FOR UNKNOWN INDICATION
     Dosage: UNK, UNK
     Route: 065
  6. IRBESARTAN [Suspect]
     Indication: HYPERTENSION
     Dosage: UNK, UNK
     Route: 048
     Dates: start: 20100201
  7. NEXIUM [Suspect]
     Indication: HELICOBACTER INFECTION
     Dosage: 20 MG, BID
     Route: 048
  8. LODALES [Suspect]
     Indication: PRODUCT USED FOR UNKNOWN INDICATION
     Dosage: UNK, UNK
     Route: 065
  9. SMECTA [Suspect]
     Indication: PRODUCT USED FOR UNKNOWN INDICATION
     Dosage: UNK, UNK
     Route: 065
  10. AMOXICILLINE RANBAXY 1 G COMPRIME DISPERSIBLE [Suspect]
     Indication: HELICOBACTER GASTRITIS
     Dosage: UNK, UNK
     Route: 048
     Dates: start: 20100424, end: 20100501
  11. CLARITHROMYCINE RANBAXY 250 MG COMPRIME PELLICULE [Suspect]
     Indication: PRODUCT USED FOR UNKNOWN INDICATION
     Dosage: UNK, UNK
     Route: 048
     Dates: start: 20100424, end: 20100501

REACTIONS (4)
  - NEUTROPENIA [None]
  - SHOCK [None]
  - CARDIO-RESPIRATORY ARREST [None]
  - ASPIRATION [None]
